FAERS Safety Report 4330274-7 (Version None)
Quarter: 2004Q2

REPORT INFORMATION
  Report Type: 
  Country: None (occurrence: None)
  Receive Date: 20040402
  Receipt Date: 20040209
  Transmission Date: 20050107
  Serious: Yes (Other)
  Sender: FDA-Public Use
  Company Number: PHNU2004DE00779

PATIENT
  Age: 38 Year
  Sex: Female
  Weight: 80 kg

DRUGS (7)
  1. TEGRETOL-XR [Suspect]
     Indication: GRAND MAL CONVULSION
     Dosage: 400 MG, BID
     Route: 048
     Dates: start: 20030601, end: 20040211
  2. ACETAMINOPHEN [Concomitant]
     Route: 065
     Dates: start: 20031201
  3. TENORMIN [Concomitant]
     Indication: HYPERTENSION
     Dosage: 25MG/DAY
     Route: 048
     Dates: start: 20030601
  4. LAMICTAL [Concomitant]
     Indication: EPILEPSY
     Dosage: 25MG/DAY
     Route: 048
     Dates: start: 20040211, end: 20040101
  5. LAMICTAL [Concomitant]
     Dosage: DOSAGE INCREASED
     Route: 048
     Dates: end: 20040315
  6. LAMICTAL [Concomitant]
     Dosage: 125MG/DAY
     Route: 048
     Dates: start: 20040316
  7. ALCOHOL [Concomitant]

REACTIONS (8)
  - ALANINE AMINOTRANSFERASE INCREASED [None]
  - ASPARTATE AMINOTRANSFERASE INCREASED [None]
  - GAMMA-GLUTAMYLTRANSFERASE INCREASED [None]
  - HIGH DENSITY LIPOPROTEIN DECREASED [None]
  - HYPERCHOLESTEROLAEMIA [None]
  - HYPERTRIGLYCERIDAEMIA [None]
  - LOW DENSITY LIPOPROTEIN INCREASED [None]
  - WEIGHT INCREASED [None]
